FAERS Safety Report 20722566 (Version 2)
Quarter: 2022Q2

REPORT INFORMATION
  Report Type: Spontaneous
  Country: CN (occurrence: None)
  Receive Date: 20220418
  Receipt Date: 20220427
  Transmission Date: 20220721
  Serious: Yes (Hospitalization, Other)
  Sender: FDA-Public Use
  Company Number: 2022A149421

PATIENT
  Age: 66 Year
  Sex: Male
  Weight: 62 kg

DRUGS (2)
  1. IMFINZI [Suspect]
     Active Substance: DURVALUMAB
     Indication: Non-small cell lung cancer
     Dosage: MEDICATION WAS 500MG/PERIOD.
     Route: 042
     Dates: start: 20211209, end: 20211212
  2. IMFINZI [Suspect]
     Active Substance: DURVALUMAB
     Indication: Radiotherapy
     Dosage: MEDICATION WAS 500MG/PERIOD.
     Route: 042
     Dates: start: 20211209, end: 20211212

REACTIONS (1)
  - Radiation pneumonitis [Recovering/Resolving]

NARRATIVE: CASE EVENT DATE: 20210801
